FAERS Safety Report 7384024-0 (Version None)
Quarter: 2011Q1

REPORT INFORMATION
  Report Type: 
  Country: None (occurrence: None)
  Receive Date: 20110330
  Receipt Date: 20110324
  Transmission Date: 20110831
  Serious: Yes (Life-Threatening, Hospitalization)
  Sender: FDA-Public Use
  Company Number: JP-NAPPMUNDI-MAG-2011-0001464

PATIENT
  Age: 35 Year
  Sex: Male

DRUGS (2)
  1. GLYCYRON                           /00466401/ [Suspect]
     Indication: ASTHMA
     Route: 048
  2. THEOPHYLLINE [Suspect]
     Indication: PRODUCT USED FOR UNKNOWN INDICATION
     Dosage: 100 UNK, UNK
     Route: 048

REACTIONS (4)
  - DRUG LEVEL INCREASED [None]
  - HYPOTENSION [None]
  - MULTIPLE DRUG OVERDOSE INTENTIONAL [None]
  - HEART RATE INCREASED [None]
